FAERS Safety Report 7908855-0 (Version None)
Quarter: 2011Q4

REPORT INFORMATION
  Report Type: 
  Country: None (occurrence: None)
  Receive Date: 20111111
  Receipt Date: 20111101
  Transmission Date: 20120403
  Serious: Yes (Hospitalization)
  Sender: FDA-Public Use
  Company Number: US-BAYER-2011-027464

PATIENT
  Age: 42 Year
  Sex: Female
  Weight: 66 kg

DRUGS (7)
  1. YAZ [Suspect]
     Indication: PREMENSTRUAL SYNDROME
  2. RESTORE-X [Concomitant]
     Indication: PROBIOTIC THERAPY
     Dosage: UNK UNK, QD
     Dates: start: 20100201
  3. LOESTRIN 1.5/30 [Concomitant]
  4. CALCIUM [Concomitant]
     Dosage: UNK UNK, QD
     Dates: start: 20100201
  5. ASCORBIC ACID [Concomitant]
     Dosage: UNK UNK, QD
     Dates: start: 20100201
  6. YAZ [Suspect]
     Indication: ORAL CONTRACEPTION
     Dosage: UNK
     Route: 048
     Dates: start: 20060101, end: 20100401
  7. FISH OIL [Concomitant]
     Dosage: 100 MG, QD
     Dates: start: 20100201

REACTIONS (5)
  - PAIN [None]
  - ANXIETY [None]
  - PULMONARY EMBOLISM [None]
  - GENERAL PHYSICAL HEALTH DETERIORATION [None]
  - EMOTIONAL DISTRESS [None]
